FAERS Safety Report 6835565-3 (Version None)
Quarter: 2010Q3

REPORT INFORMATION
  Report Type: 
  Country: None (occurrence: None)
  Receive Date: 20100713
  Receipt Date: 20070424
  Transmission Date: 20110219
  Serious: No
  Sender: FDA-Public Use
  Company Number: US-PFIZER INC-2007033425

PATIENT
  Age: 58 Year
  Sex: Female
  Weight: 45.36 kg

DRUGS (7)
  1. CHANTIX [Suspect]
     Indication: SMOKING CESSATION THERAPY
     Dates: start: 20070417, end: 20070423
  2. XANAX [Concomitant]
  3. OSCAL 500-D [Concomitant]
  4. VITAMIN C [Concomitant]
  5. IBANDRONATE SODIUM [Concomitant]
  6. DEMEROL [Concomitant]
     Indication: PAIN
  7. NICOTROL [Concomitant]
     Indication: SMOKING CESSATION THERAPY

REACTIONS (8)
  - ASTHENIA [None]
  - FEELING ABNORMAL [None]
  - HEADACHE [None]
  - INSOMNIA [None]
  - NAUSEA [None]
  - OESOPHAGEAL PAIN [None]
  - STRESS [None]
  - TOBACCO USER [None]
